FAERS Safety Report 18730543 (Version 2)
Quarter: 2021Q1

REPORT INFORMATION
  Report Type: Spontaneous
  Country: GB (occurrence: GB)
  Receive Date: 20210112
  Receipt Date: 20210128
  Transmission Date: 20210419
  Serious: Yes (Other)
  Sender: FDA-Public Use
  Company Number: GB-TEVA-2021-GB-1866156

PATIENT
  Age: 46 Year
  Sex: Female
  Weight: 54 kg

DRUGS (14)
  1. DIAZEPAM. [Concomitant]
     Active Substance: DIAZEPAM
     Dosage: ONE OR TWO UP TO TWO HOURS BEFORE PROCEDURE
     Dates: start: 20201002, end: 20201003
  2. AMITRIPTYLINE HYDROCHLORIDE. [Concomitant]
     Active Substance: AMITRIPTYLINE HYDROCHLORIDE
     Dosage: 1 DOSAGE FORMS DAILY; AT NIGHT
     Dates: start: 20201118, end: 20201216
  3. ORAMORPH [Concomitant]
     Active Substance: MORPHINE SULFATE
     Dosage: UP TO TWICE DAILY WITH 10ML ... UNIT DOSE:5 ML
     Dates: start: 20200903
  4. ATORVASTATIN [Concomitant]
     Active Substance: ATORVASTATIN
     Dosage: 1 DOSAGE FORMS
     Dates: start: 20200330
  5. DOCUSATE SODIUM. [Concomitant]
     Active Substance: DOCUSATE SODIUM
     Indication: CONSTIPATION
     Dosage: 4 DOSAGE FORMS
     Dates: start: 20200330
  6. OMEPRAZOLE. [Concomitant]
     Active Substance: OMEPRAZOLE
     Dosage: 1 DOSAGE FORMS
     Dates: start: 20200811
  7. MICRALAX [Concomitant]
     Dosage: INSERT, 1 DOSAGE FORMS
     Dates: start: 20201112, end: 20201124
  8. AMOXICILLIN. [Concomitant]
     Active Substance: AMOXICILLIN
     Dosage: 3 DOSAGE FORMS
     Dates: start: 20201130, end: 20201207
  9. GABAPENTIN. [Concomitant]
     Active Substance: GABAPENTIN
     Indication: PAIN
     Dosage: 3 DOSAGE FORMS
     Dates: start: 20201112, end: 20201210
  10. HUMALOG [Concomitant]
     Active Substance: INSULIN LISPRO
     Dosage: AS DIRECTED
     Dates: start: 20200330
  11. NITROFURANTOIN. [Concomitant]
     Active Substance: NITROFURANTOIN
     Dosage: 2 DOSAGE FORMS
     Dates: start: 20201123, end: 20201130
  12. TRIMETHOPRIM. [Suspect]
     Active Substance: TRIMETHOPRIM
     Dosage: 400 MG
     Route: 065
     Dates: start: 20201208
  13. PROCHLORPERAZINE. [Concomitant]
     Active Substance: PROCHLORPERAZINE
     Dosage: 3 DOSAGE FORMS DAILY;
     Dates: start: 20201217
  14. ZAPAIN [Concomitant]
     Active Substance: ACETAMINOPHEN\CODEINE PHOSPHATE
     Dosage: FOUR TIMES A DAY WHEN REQUIRED AS DIRECTED
     Dates: start: 20200903

REACTIONS (3)
  - Nausea [Unknown]
  - Vertigo [Unknown]
  - Vomiting [Unknown]

NARRATIVE: CASE EVENT DATE: 20201217
